FAERS Safety Report 13615748 (Version 5)
Quarter: 2019Q4

REPORT INFORMATION
  Report Type: Spontaneous
  Country: US (occurrence: US)
  Receive Date: 20170606
  Receipt Date: 20191119
  Transmission Date: 20200122
  Serious: Yes (Hospitalization, Other)
  Sender: FDA-Public Use
  Company Number: US-PFIZER INC-2017242351

PATIENT
  Age: 80 Year
  Sex: Female

DRUGS (5)
  1. AMLODIPINE [Concomitant]
     Active Substance: AMLODIPINE BESYLATE
     Indication: BLOOD PRESSURE MEASUREMENT
     Dosage: 1 DF, 1X/DAY
  2. TIKOSYN [Suspect]
     Active Substance: DOFETILIDE
     Dosage: UNK (QUANTITY FOR 90 DAYS: 180)
  3. MAGNESIUM OXIDE. [Concomitant]
     Active Substance: MAGNESIUM OXIDE
     Dosage: 400 MG, DAILY
     Dates: start: 201705
  4. XARELTO [Concomitant]
     Active Substance: RIVAROXABAN
     Dosage: 20 MG, 1X/DAY
  5. TIKOSYN [Suspect]
     Active Substance: DOFETILIDE
     Indication: ATRIAL FIBRILLATION
     Dosage: 125 UG, 2X/DAY
     Dates: start: 201705

REACTIONS (3)
  - Product prescribing error [Unknown]
  - Mental impairment [Unknown]
  - Angina pectoris [Unknown]

NARRATIVE: CASE EVENT DATE: 201705
